FAERS Safety Report 10412896 (Version 2)
Quarter: 2014Q3

REPORT INFORMATION
  Report Type: Spontaneous
  Country: US (occurrence: US)
  Receive Date: 20140827
  Receipt Date: 20140827
  Transmission Date: 20150326
  Serious: Yes (Hospitalization, Disabling, Other)
  Sender: FDA-Public Use
  Company Number: US-009507513-2011SP000367

PATIENT
  Sex: Female
  Weight: 69.85 kg

DRUGS (1)
  1. NUVARING [Suspect]
     Active Substance: ETHINYL ESTRADIOL\ETONOGESTREL
     Indication: CONTRACEPTION
     Dates: start: 2008, end: 20090105

REACTIONS (10)
  - Vomiting [Unknown]
  - Cervical dysplasia [Unknown]
  - Deep vein thrombosis [Not Recovered/Not Resolved]
  - Abortion spontaneous [Recovered/Resolved]
  - Nephrolithiasis [Unknown]
  - Nausea [Unknown]
  - Pulmonary embolism [Recovered/Resolved]
  - Unintended pregnancy [Recovered/Resolved]
  - Migraine [Unknown]
  - Thrombophlebitis superficial [Not Recovered/Not Resolved]

NARRATIVE: CASE EVENT DATE: 2008
